FAERS Safety Report 8002152-3 (Version None)
Quarter: 2011Q4

REPORT INFORMATION
  Report Type: 
  Country: None (occurrence: None)
  Receive Date: 20111222
  Receipt Date: 20111220
  Transmission Date: 20120403
  Serious: Yes (Other)
  Sender: FDA-Public Use
  Company Number: FR-JNJFOC-20111207162

PATIENT

DRUGS (24)
  1. DOXORUBICIN HCL [Suspect]
     Dosage: CYCLE 1
     Route: 042
  2. CYCLOPHOSPHAMIDE [Suspect]
     Indication: DIFFUSE LARGE B-CELL LYMPHOMA
     Route: 065
  3. CYCLOPHOSPHAMIDE [Suspect]
     Route: 065
  4. PREDNISONE TAB [Suspect]
     Route: 065
  5. RITUXIMAB [Suspect]
     Route: 065
  6. CYCLOPHOSPHAMIDE [Suspect]
     Route: 065
  7. VINCRISTINE [Suspect]
     Route: 065
  8. DOXORUBICIN HCL [Suspect]
     Indication: DIFFUSE LARGE B-CELL LYMPHOMA
     Dosage: CYCLE 4
     Route: 042
  9. PREDNISONE TAB [Suspect]
     Route: 065
  10. DOXORUBICIN HCL [Suspect]
     Dosage: CYCLE 2
     Route: 042
  11. RITUXIMAB [Suspect]
     Indication: DIFFUSE LARGE B-CELL LYMPHOMA
     Route: 065
  12. RITUXIMAB [Suspect]
     Route: 065
  13. METHOTREXATE [Suspect]
     Route: 037
  14. VINCRISTINE [Suspect]
     Indication: DIFFUSE LARGE B-CELL LYMPHOMA
     Route: 065
  15. VINCRISTINE [Suspect]
     Route: 065
  16. DOXORUBICIN HCL [Suspect]
     Dosage: CYCLE 3
     Route: 042
  17. RITUXIMAB [Suspect]
     Route: 065
  18. CYCLOPHOSPHAMIDE [Suspect]
     Route: 065
  19. METHOTREXATE [Suspect]
     Indication: PROPHYLAXIS
     Route: 037
  20. VINCRISTINE [Suspect]
     Route: 065
  21. PREDNISONE TAB [Suspect]
     Indication: DIFFUSE LARGE B-CELL LYMPHOMA
     Route: 065
  22. PREDNISONE TAB [Suspect]
     Route: 065
  23. METHOTREXATE [Suspect]
     Route: 037
  24. METHOTREXATE [Suspect]
     Route: 037

REACTIONS (1)
  - LUNG NEOPLASM MALIGNANT [None]
